FAERS Safety Report 11003851 (Version 1)
Quarter: 2015Q2

REPORT INFORMATION
  Report Type: Spontaneous
  Country: US (occurrence: US)
  Receive Date: 20150409
  Receipt Date: 20150409
  Transmission Date: 20150821
  Serious: Yes (Hospitalization, Other)
  Sender: FDA-Public Use
  Company Number: US-AMGEN-USASP2015034028

PATIENT
  Age: 57 Year
  Sex: Female

DRUGS (1)
  1. ENBREL [Suspect]
     Active Substance: ETANERCEPT
     Indication: ANKYLOSING SPONDYLITIS
     Dosage: 50 MG, Q2WK
     Route: 065
     Dates: start: 2010, end: 2015

REACTIONS (8)
  - Musculoskeletal stiffness [Not Recovered/Not Resolved]
  - Nasopharyngitis [Recovering/Resolving]
  - Pneumonia [Recovered/Resolved]
  - Rhinorrhoea [Recovering/Resolving]
  - Dysphonia [Recovering/Resolving]
  - Incorrect drug administration duration [Unknown]
  - Productive cough [Recovering/Resolving]
  - Fatigue [Recovering/Resolving]

NARRATIVE: CASE EVENT DATE: 2015
